FAERS Safety Report 8340537-6 (Version None)
Quarter: 2012Q2

REPORT INFORMATION
  Report Type: 
  Country: None (occurrence: None)
  Receive Date: 20120507
  Receipt Date: 20090828
  Transmission Date: 20120825
  Serious: Yes (Hospitalization)
  Sender: FDA-Public Use
  Company Number: US-TEVA-2009009738

PATIENT
  Sex: Male
  Weight: 85.806 kg

DRUGS (1)
  1. TREANDA [Suspect]
     Indication: CHRONIC LYMPHOCYTIC LEUKAEMIA
     Route: 042
     Dates: start: 20090707, end: 20090729

REACTIONS (3)
  - RASH MACULO-PAPULAR [None]
  - CHEST PAIN [None]
  - DYSPNOEA [None]
